FAERS Safety Report 12893127 (Version 1)
Quarter: 2016Q4

REPORT INFORMATION
  Report Type: Spontaneous
  Country: US (occurrence: US)
  Receive Date: 20161028
  Receipt Date: 20161028
  Transmission Date: 20170207
  Serious: Yes (Other)
  Sender: FDA-Public Use
  Company Number: US-PFIZER INC-2016503105

PATIENT
  Age: 60 Year
  Sex: Male

DRUGS (1)
  1. RAPAMUNE [Suspect]
     Active Substance: SIROLIMUS
     Dosage: 1 MG, UNK

REACTIONS (5)
  - Graft versus host disease [Unknown]
  - Product use issue [Unknown]
  - Drug dose omission [Unknown]
  - Malaise [Recovered/Resolved]
  - Vomiting [Recovered/Resolved]
